FAERS Safety Report 8056542-3 (Version None)
Quarter: 2012Q1

REPORT INFORMATION
  Report Type: 
  Country: None (occurrence: None)
  Receive Date: 20120119
  Receipt Date: 20120111
  Transmission Date: 20120608
  Serious: Yes (Hospitalization)
  Sender: FDA-Public Use
  Company Number: FR-TEVA-318030ISR

PATIENT
  Age: 64 Year
  Sex: Female

DRUGS (2)
  1. FLUOROURACIL [Suspect]
     Dates: start: 20110901, end: 20110901
  2. CISPLATIN [Suspect]
     Route: 042
     Dates: start: 20110901, end: 20110901

REACTIONS (1)
  - ENCEPHALOPATHY [None]
